FAERS Safety Report 8317592-2 (Version None)
Quarter: 2012Q2

REPORT INFORMATION
  Report Type: 
  Country: None (occurrence: None)
  Receive Date: 20120427
  Receipt Date: 20110412
  Transmission Date: 20120825
  Serious: No
  Sender: FDA-Public Use
  Company Number: US-GLAXOSMITHKLINE-A0922684A

PATIENT
  Sex: Male

DRUGS (1)
  1. ONDANSETRON [Suspect]
     Indication: IRRITABLE BOWEL SYNDROME
     Dosage: 8MG TWICE PER DAY
     Route: 048
     Dates: start: 20100101, end: 20100101

REACTIONS (3)
  - FAECAL INCONTINENCE [None]
  - DIARRHOEA [None]
  - DRUG INEFFECTIVE [None]
